FAERS Safety Report 6838949-2 (Version None)
Quarter: 2010Q3

REPORT INFORMATION
  Report Type: 
  Country: None (occurrence: None)
  Receive Date: 20100713
  Receipt Date: 20070928
  Transmission Date: 20110219
  Serious: Yes (Hospitalization, Other)
  Sender: FDA-Public Use
  Company Number: US-PFIZER INC-2007046054

PATIENT
  Sex: Female
  Weight: 41.4 kg

DRUGS (10)
  1. CHANTIX [Suspect]
     Indication: SMOKING CESSATION THERAPY
     Dates: start: 20070508
  2. NEURONTIN [Concomitant]
  3. ZOCOR [Concomitant]
     Indication: BLOOD CHOLESTEROL DECREASED
  4. ZESTRIL [Concomitant]
  5. TRICOR [Concomitant]
  6. VICODIN [Concomitant]
  7. VITAMINS [Concomitant]
  8. HYDROCODONE BITARTRATE [Concomitant]
  9. ANTIHYPERTENSIVES [Concomitant]
     Indication: HYPERTENSION
  10. ALL OTHER THERAPEUTIC PRODUCTS [Concomitant]
     Indication: PAIN

REACTIONS (2)
  - CHOLECYSTITIS [None]
  - NAUSEA [None]
